FAERS Safety Report 7786819-8 (Version None)
Quarter: 2011Q3

REPORT INFORMATION
  Report Type: 
  Country: None (occurrence: None)
  Receive Date: 20110929
  Receipt Date: 20110923
  Transmission Date: 20111222
  Serious: Yes (Death, Hospitalization, Other)
  Sender: FDA-Public Use
  Company Number: MX-SANOFI-AVENTIS-2011SA062360

PATIENT
  Age: 80 Year
  Sex: Female

DRUGS (3)
  1. CAPTOPRIL [Concomitant]
     Route: 048
     Dates: end: 20110601
  2. LANTUS [Suspect]
     Indication: DIABETES MELLITUS
     Route: 058
     Dates: end: 20110601
  3. ASPIRIN [Concomitant]
     Route: 048
     Dates: end: 20110601

REACTIONS (2)
  - MYOCARDIAL INFARCTION [None]
  - ASCITES [None]
